FAERS Safety Report 8377657-6 (Version None)
Quarter: 2012Q2

REPORT INFORMATION
  Report Type: 
  Country: None (occurrence: None)
  Receive Date: 20120522
  Receipt Date: 20120514
  Transmission Date: 20120825
  Serious: Yes (Other)
  Sender: FDA-Public Use
  Company Number: US-MERCK-1205USA02589

PATIENT
  Age: 58 Year
  Sex: Female

DRUGS (4)
  1. SINGULAIR [Suspect]
     Indication: ASTHMA
     Route: 065
     Dates: end: 20120401
  2. FLOVENT [Concomitant]
     Route: 065
  3. CITALOPRAM [Concomitant]
     Route: 065
  4. SINGULAIR [Suspect]
     Indication: CHRONIC OBSTRUCTIVE PULMONARY DISEASE
     Route: 065
     Dates: end: 20120401

REACTIONS (3)
  - DYSPNOEA [None]
  - CHEST PAIN [None]
  - DRUG DOSE OMISSION [None]
